FAERS Safety Report 4981613-5 (Version None)
Quarter: 2006Q2

REPORT INFORMATION
  Report Type: 
  Country: None (occurrence: None)
  Receive Date: 20060425
  Receipt Date: 20060411
  Transmission Date: 20061013
  Serious: Yes (Other)
  Sender: FDA-Public Use
  Company Number: GB-JNJFOC-20060402450

PATIENT
  Sex: Female

DRUGS (10)
  1. REMICADE [Suspect]
     Indication: RHEUMATOID ARTHRITIS
     Route: 042
  2. FRUMIL [Concomitant]
  3. FRUMIL [Concomitant]
  4. LANSOPRAZOLE [Concomitant]
  5. LOPRAZOLAM [Concomitant]
  6. TRAMADOL HCL [Concomitant]
  7. ACETAMINOPHEN W/ CODEINE [Concomitant]
  8. ACETAMINOPHEN W/ CODEINE [Concomitant]
  9. ACETAMINOPHEN W/ CODEINE [Concomitant]
  10. VIOXX [Concomitant]

REACTIONS (1)
  - NON-HODGKIN'S LYMPHOMA [None]
